FAERS Safety Report 5647245-0 (Version None)
Quarter: 2008Q1

REPORT INFORMATION
  Report Type: 
  Country: None (occurrence: None)
  Receive Date: 20080303
  Receipt Date: 20080225
  Transmission Date: 20080703
  Serious: Yes (Other)
  Sender: FDA-Public Use
  Company Number: PHEH2006US03646

PATIENT
  Age: 57 Year
  Sex: Female

DRUGS (11)
  1. AREDIA [Suspect]
  2. ZOMETA [Suspect]
  3. FASLODEX [Concomitant]
     Dosage: UNK, QMO
  4. TRIAMTERENE [Concomitant]
     Dosage: UNK, QD
  5. POTASSIUM CHLORIDE [Concomitant]
     Dosage: 10 MEQ, BID
  6. VITAMIN E [Concomitant]
     Dosage: 400 IU, QD
  7. VITAMIN B-12 [Concomitant]
     Dosage: 500 MG, QD
  8. TYLENOL W/ CODEINE NO. 3 [Concomitant]
  9. DEXAMETHASONE TAB [Concomitant]
  10. ANTINEOPLASTIC AGENTS [Concomitant]
     Dosage: UNK, UNK
     Dates: end: 20050201
  11. RADIATION [Concomitant]
     Dates: end: 20041001

REACTIONS (10)
  - ANXIETY [None]
  - BONE DISORDER [None]
  - DECREASED INTEREST [None]
  - MALIGNANT NEOPLASM PROGRESSION [None]
  - ORAL PAIN [None]
  - OSTEONECROSIS [None]
  - PAIN [None]
  - SWOLLEN TONGUE [None]
  - TONGUE DISORDER [None]
  - TOOTH EXTRACTION [None]
